FAERS Safety Report 10215182 (Version 2)
Quarter: 2014Q2

REPORT INFORMATION
  Report Type: Report from Study
  Country: AU (occurrence: AU)
  Receive Date: 20140603
  Receipt Date: 20140603
  Transmission Date: 20141212
  Serious: Yes (Death, Hospitalization)
  Sender: FDA-Public Use
  Company Number: PHHO2014AU007510

PATIENT
  Age: 69 Year
  Sex: Male
  Weight: 76 kg

DRUGS (30)
  1. CERTICAN [Suspect]
     Indication: RENAL TRANSPLANT
     Dosage: 3.5 MG, BID
     Route: 048
     Dates: start: 20140507, end: 20140518
  2. COMPARATOR TACROLIMUS [Suspect]
     Indication: RENAL TRANSPLANT
     Dosage: 2.5 MG, BID
     Route: 048
     Dates: start: 20140507, end: 20140518
  3. PREDNISOLONE [Suspect]
     Indication: RENAL TRANSPLANT
     Dosage: UNK
     Dates: start: 20140508
  4. PANTOPRAZOLE [Concomitant]
     Indication: GASTROOESOPHAGEAL REFLUX PROPHYLAXIS
     Dosage: UNK
     Dates: start: 20140507
  5. BACTRIM DS [Concomitant]
     Indication: ANTIFUNGAL PROPHYLAXIS
     Dosage: UNK
     Dates: start: 20140506
  6. DARBEPOETIN ALFA [Concomitant]
     Indication: ANAEMIA
     Dosage: UNK
     Dates: start: 20140516
  7. AMPHOTERICIN [Concomitant]
     Indication: ANTIFUNGAL PROPHYLAXIS
  8. TAZOCIN [Concomitant]
     Indication: INFECTION PROPHYLAXIS
     Dosage: 4.5 MG, BID
     Route: 042
     Dates: start: 20140519, end: 20140521
  9. PROPOFOL [Concomitant]
     Dosage: UNK
     Dates: start: 20140519, end: 20140522
  10. AZITHROMYCIN [Concomitant]
     Indication: INFECTION PROPHYLAXIS
     Dosage: 500 MG, QD
     Route: 042
     Dates: start: 20140519
  11. ACTRAPID HUMAN [Concomitant]
     Dosage: UNK
     Dates: start: 20140519
  12. TAMIFLU [Concomitant]
     Dosage: 75 MG, QD
     Dates: start: 20140519
  13. GANCICLOVIR [Concomitant]
     Indication: INFECTION PROPHYLAXIS
     Dosage: 90 MG, QD
     Route: 042
     Dates: start: 20140519
  14. PARACETAMOL [Concomitant]
     Indication: PAIN PROPHYLAXIS
     Dosage: 1 G, QID
  15. HYDROCORTISONE [Concomitant]
     Indication: IMMUNOSUPPRESSION
     Dosage: 100 MG, UNK
     Route: 042
  16. FENTANYL [Concomitant]
     Indication: PAIN PROPHYLAXIS
     Dosage: 20 MG/ML, UNK
     Dates: start: 20140519, end: 20140520
  17. PHENYTOIN [Concomitant]
     Indication: PROPHYLAXIS
     Dosage: 1.25 G, UNK [1.25G, 300MG IV DAILY +START DOSES]
     Route: 042
     Dates: start: 20140519
  18. PRAZOSIN [Concomitant]
     Indication: HYPERTENSION
     Dosage: 2 MG, BID
     Dates: start: 20140519
  19. ESOMEPRAZOLE [Concomitant]
     Indication: PROPHYLAXIS
     Dosage: 20 MG, QD
     Dates: start: 20140520, end: 20140520
  20. AMLODIPINE [Concomitant]
     Indication: HYPERTENSION
     Dosage: 10 MG, QD
     Dates: start: 20140519
  21. ATORVASTATIN [Concomitant]
     Indication: HYPERLIPIDAEMIA
     Dosage: 40 MG, QD
     Dates: start: 20140520
  22. FOLIC ACID [Concomitant]
     Indication: PROPHYLAXIS
     Dosage: 5 MG, QD
     Dates: start: 20140521
  23. LEVETIRACETAM [Concomitant]
     Indication: PROPHYLAXIS
     Dosage: 500 MG, BID
     Route: 042
     Dates: start: 20140520
  24. NORADRENALINE [Concomitant]
     Indication: HYPERTENSION
     Dosage: 1 DF,  [6MG/100ML]
     Dates: start: 20140520
  25. MIDAZOLAM [Concomitant]
     Dosage: 1 MG/ML, UNK
     Dates: start: 20140520, end: 20140522
  26. HEPARIN [Concomitant]
     Dosage: 5000 U, BID
     Route: 058
     Dates: start: 20140520
  27. MEROPENEM [Concomitant]
     Indication: INFECTION PROPHYLAXIS
     Dosage: 1 G, POST DIALYSIS
     Dates: start: 20140521
  28. CLONAZEPAM [Concomitant]
     Indication: PROPHYLAXIS
     Dosage: UNK
     Dates: start: 20140520
  29. PHENOBARBITONE [Concomitant]
     Indication: PROPHYLAXIS
     Dosage: 100 MG, UNK
     Route: 042
     Dates: start: 20140521, end: 20140522
  30. DEXMEDETOMIDINE [Concomitant]
     Indication: PROPHYLAXIS
     Dosage: 400MCG/40ML, 10ML/HR
     Dates: end: 20140522

REACTIONS (5)
  - Pneumonia [Fatal]
  - Anaemia postoperative [Recovered/Resolved]
  - Convulsion [Not Recovered/Not Resolved]
  - Pulmonary oedema [None]
  - Acute lung injury [None]
